FAERS Safety Report 9328364 (Version 1)
Quarter: 2013Q2

REPORT INFORMATION
  Report Type: Spontaneous
  Country: US (occurrence: US)
  Receive Date: 20130604
  Receipt Date: 20130604
  Transmission Date: 20140414
  Serious: Yes (Other)
  Sender: FDA-Public Use
  Company Number: US-SANOFI-AVENTIS-2012SA048958

PATIENT
  Age: 71 Year
  Sex: Female
  Weight: 63.5 kg

DRUGS (5)
  1. LANTUS [Suspect]
     Indication: DIABETES MELLITUS
     Dosage: DOSE:11 UNIT(S)
     Route: 058
     Dates: start: 20100311
  2. LANTUS [Suspect]
     Indication: DIABETES MELLITUS
     Dosage: DOSE:11 UNIT(S)
     Route: 058
     Dates: start: 20100311
  3. DEXTROAMPHETAMINE [Concomitant]
  4. DABIGATRAN ETEXILATE [Concomitant]
  5. LOSARTAN [Concomitant]

REACTIONS (1)
  - Hypoglycaemia [Recovered/Resolved]
